FAERS Safety Report 9562470 (Version 3)
Quarter: 2013Q4

REPORT INFORMATION
  Report Type: Spontaneous
  Country: JP (occurrence: JP)
  Receive Date: 20130927
  Receipt Date: 20131120
  Transmission Date: 20140711
  Serious: Yes (Hospitalization)
  Sender: FDA-Public Use
  Company Number: JP-GLAXOSMITHKLINE-B0925197A

PATIENT
  Age: 66 Year
  Sex: Female

DRUGS (7)
  1. VALTREX [Suspect]
     Indication: HERPES ZOSTER
     Dosage: 1000MG TWICE PER DAY
     Route: 048
     Dates: start: 20130914, end: 20130916
  2. ARTIST [Concomitant]
     Dosage: 10MG PER DAY
     Route: 048
  3. NORVASC [Concomitant]
     Dosage: 5MG PER DAY
     Route: 048
  4. PARIET [Concomitant]
     Dosage: 10MG PER DAY
     Route: 048
  5. REZALTAS [Concomitant]
     Dosage: 1IUAX PER DAY
     Route: 048
  6. CALTAN [Concomitant]
     Dosage: .6G PER DAY
     Route: 048
  7. PLETAAL [Concomitant]
     Dosage: 100MG TWICE PER DAY
     Route: 048

REACTIONS (7)
  - Paralysis flaccid [Recovering/Resolving]
  - Toxic encephalopathy [Recovering/Resolving]
  - Asthenia [Recovered/Resolved]
  - Dyslalia [Recovered/Resolved]
  - Muscular weakness [Recovered/Resolved]
  - Dysstasia [Recovering/Resolving]
  - Overdose [Unknown]
